FAERS Safety Report 4736719-2 (Version None)
Quarter: 2005Q3

REPORT INFORMATION
  Report Type: 
  Country: None (occurrence: None)
  Receive Date: 20050808
  Receipt Date: 20050627
  Transmission Date: 20060218
  Serious: Yes (Hospitalization)
  Sender: FDA-Public Use
  Company Number: 200511893JP

PATIENT
  Age: 27 Year
  Sex: Female
  Weight: 42 kg

DRUGS (2)
  1. LASIX [Suspect]
     Route: 048
  2. CHINESE MEDICINE [Concomitant]

REACTIONS (6)
  - ANOREXIA [None]
  - HYPOAESTHESIA [None]
  - HYPOKALAEMIA [None]
  - HYPONATRAEMIA [None]
  - MALAISE [None]
  - NAUSEA [None]
